FAERS Safety Report 5704464-2 (Version None)
Quarter: 2008Q2

REPORT INFORMATION
  Report Type: 
  Country: None (occurrence: None)
  Receive Date: 20080414
  Receipt Date: 20080409
  Transmission Date: 20081010
  Serious: Yes (Hospitalization, Other)
  Sender: FDA-Public Use
  Company Number: US-MERCK-0707USA00953

PATIENT
  Age: 63 Year
  Sex: Female
  Weight: 92 kg

DRUGS (17)
  1. FOSAMAX [Suspect]
     Route: 048
     Dates: start: 19990401
  2. FOSAMAX [Suspect]
     Route: 048
     Dates: end: 20060301
  3. ACYCLOVIR [Concomitant]
     Indication: GENITAL HERPES
     Route: 065
     Dates: start: 19990101
  4. AMBIEN [Concomitant]
     Indication: SLEEP DISORDER
     Route: 065
     Dates: start: 19990101
  5. CELEBREX [Concomitant]
     Indication: PAIN
     Route: 065
     Dates: start: 20000401, end: 20060101
  6. CYMBALTA [Concomitant]
     Indication: DEPRESSION
     Route: 065
     Dates: start: 20050101
  7. CARDIZEM [Concomitant]
     Indication: HYPERTENSION
     Route: 065
     Dates: start: 20031001
  8. ENALAPRIL MALEATE [Concomitant]
     Indication: HYPERTENSION
     Route: 065
     Dates: start: 20000301
  9. EVISTA [Concomitant]
     Indication: OSTEOPOROSIS
     Route: 065
     Dates: start: 19990101
  10. KEPPRA [Concomitant]
     Indication: CONVULSION
     Route: 065
     Dates: start: 20041001
  11. NEXIUM [Concomitant]
     Indication: GASTROOESOPHAGEAL REFLUX DISEASE
     Route: 065
     Dates: start: 20010801
  12. PRAVACHOL [Concomitant]
     Indication: BLOOD CHOLESTEROL INCREASED
     Route: 065
     Dates: start: 20030101
  13. RANITIDINE [Concomitant]
     Indication: HYPERCHLORHYDRIA
     Route: 065
     Dates: start: 20021001
  14. EFFEXOR [Concomitant]
     Indication: DEPRESSION
     Route: 065
     Dates: start: 20041001, end: 20060701
  15. PROZAC [Concomitant]
     Indication: DEPRESSION
     Route: 065
     Dates: start: 19990401, end: 20060701
  16. ZYPREXA [Concomitant]
     Indication: AFFECTIVE DISORDER
     Route: 065
     Dates: start: 20060101, end: 20060401
  17. FLEXERIL [Concomitant]
     Indication: PAIN
     Route: 065
     Dates: start: 20050601, end: 20060301

REACTIONS (26)
  - ANXIETY [None]
  - APHTHOUS STOMATITIS [None]
  - ARTHROPATHY [None]
  - CEREBRAL CYST [None]
  - CONTUSION [None]
  - DEPRESSION [None]
  - DERMAL CYST [None]
  - DYSPHONIA [None]
  - FOREIGN BODY TRAUMA [None]
  - HIATUS HERNIA [None]
  - HYPERSENSITIVITY [None]
  - MUSCLE STRAIN [None]
  - NASAL SEPTUM DEVIATION [None]
  - NECK INJURY [None]
  - NERVOUS SYSTEM DISORDER [None]
  - NEURALGIA [None]
  - ORAL HERPES [None]
  - OROPHARYNGEAL SPASM [None]
  - OSTEONECROSIS [None]
  - ROAD TRAFFIC ACCIDENT [None]
  - SINUS DISORDER [None]
  - TEMPOROMANDIBULAR JOINT SYNDROME [None]
  - VERTIGO [None]
  - VERTIGO POSITIONAL [None]
  - VOCAL CORD PARESIS [None]
  - WOUND [None]
